FAERS Safety Report 8235984-7 (Version None)
Quarter: 2012Q1

REPORT INFORMATION
  Report Type: 
  Country: None (occurrence: None)
  Receive Date: 20120326
  Receipt Date: 20120315
  Transmission Date: 20120608
  Serious: No
  Sender: FDA-Public Use
  Company Number: US-BAYER-2012-029032

PATIENT

DRUGS (3)
  1. ALEVE (CAPLET) [Suspect]
     Indication: HEADACHE
  2. IBUPROFEN (ADVIL) [Concomitant]
  3. DECONGESTANTS AND ANTIALLERGICS [Concomitant]

REACTIONS (1)
  - HEADACHE [None]
